FAERS Safety Report 6521909-9 (Version None)
Quarter: 2009Q4

REPORT INFORMATION
  Report Type: 
  Country: None (occurrence: None)
  Receive Date: 20091230
  Receipt Date: 20091216
  Transmission Date: 20100525
  Serious: Yes (Hospitalization)
  Sender: FDA-Public Use
  Company Number: FR-PFIZER INC-2009311515

PATIENT
  Age: 55 Year
  Sex: Female

DRUGS (8)
  1. AROMASIN [Suspect]
     Indication: BREAST CANCER IN SITU
     Dosage: 25 MG, WEEKLY
     Route: 048
  2. DI-ANTALVIC [Suspect]
     Indication: PAIN
     Dosage: UNK
     Route: 048
     Dates: end: 20090825
  3. IXPRIM [Suspect]
     Indication: PAIN
     Dosage: 10 UNK, UNK
     Route: 048
     Dates: end: 20090825
  4. CRESTOR [Suspect]
     Dosage: 10 MG, 1X/DAY
     Route: 048
     Dates: end: 20090825
  5. ALLOPURINOL [Suspect]
     Dosage: 1 DF, 1X/DAY
     Route: 048
     Dates: end: 20090825
  6. SPIRONOLACTONE [Concomitant]
     Dosage: 1 DF, 1X/DAY
  7. LEVOTHYROXINE SODIUM [Concomitant]
     Dosage: 1 DF, 1X/DAY
  8. SOTALOL [Concomitant]
     Dosage: 2 DF, 1X/DAY

REACTIONS (2)
  - HEPATITIS [None]
  - PANCREATITIS [None]
